FAERS Safety Report 4805870-0 (Version None)
Quarter: 2005Q4

REPORT INFORMATION
  Report Type: 
  Country: None (occurrence: None)
  Receive Date: 20051018
  Receipt Date: 20051006
  Transmission Date: 20060501
  Serious: Yes (Hospitalization)
  Sender: FDA-Public Use
  Company Number: 200510IM000608

PATIENT
  Age: 56 Year

DRUGS (4)
  1. INFERGEN [Suspect]
     Indication: HEPATITIS C
     Dosage: 15 UG, QD, SUBCUTATNEOUS
     Route: 058
     Dates: start: 20050702, end: 20050930
  2. CELLCEPT [Concomitant]
  3. PROGRAF [Concomitant]
  4. COZAAR [Concomitant]

REACTIONS (2)
  - HAEMOGLOBIN DECREASED [None]
  - RENAL FAILURE ACUTE [None]
